FAERS Safety Report 23561146 (Version 4)
Quarter: 2025Q1

REPORT INFORMATION
  Report Type: Other
  Country: ES (occurrence: ES)
  Receive Date: 20240224
  Receipt Date: 20250115
  Transmission Date: 20250408
  Serious: Yes (Hospitalization, Other)
  Sender: BIOCON
  Company Number: ES-BIOCON BIOLOGICS LIMITED-BBL2024001044

PATIENT

DRUGS (3)
  1. TRASTUZUMAB [Suspect]
     Active Substance: TRASTUZUMAB
     Indication: Breast cancer stage IV
     Route: 048
     Dates: start: 20231103, end: 20231115
  2. CAPECITABINE [Suspect]
     Active Substance: CAPECITABINE
     Indication: Breast cancer stage IV
     Route: 048
     Dates: start: 20231103, end: 20231115
  3. TUKYSA [Suspect]
     Active Substance: TUCATINIB
     Indication: Breast cancer stage IV
     Route: 048
     Dates: start: 20231103, end: 20231115

REACTIONS (3)
  - Hyperbilirubinaemia [Recovered/Resolved]
  - Coagulation factor decreased [Recovered/Resolved]
  - Hepatocellular injury [Recovered/Resolved]

NARRATIVE: CASE EVENT DATE: 20231115
